FAERS Safety Report 5883741-9 (Version None)
Quarter: 2008Q3

REPORT INFORMATION
  Report Type: 
  Country: None (occurrence: None)
  Receive Date: 20080912
  Receipt Date: 20080912
  Transmission Date: 20090109
  Serious: Yes (Hospitalization)
  Sender: FDA-Public Use
  Company Number: None

PATIENT
  Sex: Female
  Weight: 64.4108 kg

DRUGS (1)
  1. BEVACIZUMZB / GENENTECH [Suspect]
     Indication: BREAST CANCER METASTATIC
     Dosage: 15 MG/KG EVERY 21 DAYS IV
     Route: 042
     Dates: start: 20080215, end: 20080605

REACTIONS (2)
  - ANAL FISTULA [None]
  - ANAL HAEMORRHAGE [None]
